FAERS Safety Report 4400852-5 (Version None)
Quarter: 2004Q3

REPORT INFORMATION
  Report Type: 
  Country: None (occurrence: None)
  Receive Date: 20040907
  Receipt Date: 20030707
  Transmission Date: 20050211
  Serious: No
  Sender: FDA-Public Use
  Company Number: US-BRISTOL-MYERS SQUIBB COMPANY-12318911

PATIENT
  Age: 89 Year
  Sex: Female
  Weight: 61 kg

DRUGS (10)
  1. COUMADIN [Suspect]
     Indication: THROMBOSIS
     Dosage: DURATION OF THERAPY:  A COUPLE OF YEARS
     Route: 048
  2. ADVAIR DISKUS 100/50 [Concomitant]
  3. POTASSIUM SUPPLEMENTS [Concomitant]
  4. ELAVIL [Concomitant]
  5. MULTIVITAMIN [Concomitant]
  6. BEXTRA [Concomitant]
  7. THYROID TAB [Concomitant]
  8. ACIPHEX [Concomitant]
  9. SINGULAIR [Concomitant]
  10. NITRO PATCH [Concomitant]

REACTIONS (1)
  - RASH MACULAR [None]
